FAERS Safety Report 8050994-0 (Version None)
Quarter: 2012Q1

REPORT INFORMATION
  Report Type: 
  Country: None (occurrence: None)
  Receive Date: 20120117
  Receipt Date: 20120110
  Transmission Date: 20120608
  Serious: Yes (Death, Other)
  Sender: FDA-Public Use
  Company Number: PHHY2012GB002856

PATIENT

DRUGS (3)
  1. CYCLOSPORINE [Suspect]
     Indication: GRAFT VERSUS HOST DISEASE
     Dosage: UNK UKN, UNK
  2. BUDESONIDE [Concomitant]
     Dosage: UNK UKN, UNK
  3. PREDNISOLONE [Concomitant]
     Indication: GRAFT VERSUS HOST DISEASE
     Dosage: UNK UKN, UNK

REACTIONS (4)
  - DISEASE RECURRENCE [None]
  - BILE ACID MALABSORPTION [None]
  - THERAPEUTIC RESPONSE DECREASED [None]
  - ACUTE MYELOID LEUKAEMIA RECURRENT [None]
